FAERS Safety Report 22005326 (Version 1)
Quarter: 2023Q1

REPORT INFORMATION
  Report Type: Other
  Country: CA (occurrence: CA)
  Receive Date: 20230217
  Receipt Date: 20230217
  Transmission Date: 20230417
  Serious: Yes (Other)
  Sender: FDA-Public Use
  Company Number: CA-APOTEX-2023AP003482

PATIENT
  Age: 50 Year
  Sex: Female
  Weight: 100 kg

DRUGS (9)
  1. DIPHENHYDRAMINE [Suspect]
     Active Substance: DIPHENHYDRAMINE
     Indication: Premedication
     Dosage: 50 MILLIGRAM
     Route: 042
  2. DIPHENHYDRAMINE [Suspect]
     Active Substance: DIPHENHYDRAMINE
     Indication: Product used for unknown indication
     Dosage: 50 MILLIGRAM
     Route: 065
  3. HYDROCORTISONE [Suspect]
     Active Substance: HYDROCORTISONE
     Indication: Premedication
     Dosage: 100 MILLIGRAM
     Route: 042
  4. RENFLEXIS [Suspect]
     Active Substance: INFLIXIMAB-ABDA
     Indication: Rheumatoid arthritis
     Dosage: 300 MILLIGRAM, 1 EVERY 8 WEEKS
     Route: 042
  5. RENFLEXIS [Suspect]
     Active Substance: INFLIXIMAB-ABDA
     Dosage: 5 MILLIGRAM/KILOGRAM
     Route: 065
  6. RENFLEXIS [Suspect]
     Active Substance: INFLIXIMAB-ABDA
     Dosage: UNK
     Route: 065
  7. LEFLUNOMIDE [Concomitant]
     Active Substance: LEFLUNOMIDE
     Indication: Product used for unknown indication
     Dosage: UNK
     Route: 065
  8. RIZATRIPTAN [Concomitant]
     Active Substance: RIZATRIPTAN
     Indication: Product used for unknown indication
     Dosage: UNK
     Route: 065
  9. TYLENOL [Concomitant]
     Active Substance: ACETAMINOPHEN
     Indication: Product used for unknown indication
     Dosage: 1300 MILLIGRAM
     Route: 065

REACTIONS (23)
  - Anxiety [Recovered/Resolved]
  - Apnoea [Recovered/Resolved]
  - Chest discomfort [Recovered/Resolved]
  - Chills [Recovered/Resolved]
  - Crepitations [Recovered/Resolved]
  - Flushing [Recovered/Resolved]
  - Haemoglobin decreased [Recovered/Resolved]
  - Inappropriate schedule of product administration [Recovered/Resolved]
  - Lethargy [Recovered/Resolved]
  - Loss of consciousness [Recovered/Resolved]
  - Pain [Recovered/Resolved]
  - Perfume sensitivity [Recovered/Resolved]
  - Speech disorder [Recovered/Resolved]
  - Throat irritation [Recovered/Resolved]
  - Throat tightness [Recovered/Resolved]
  - Vomiting [Recovered/Resolved]
  - Headache [Recovered/Resolved]
  - Nausea [Recovered/Resolved]
  - Fatigue [Recovered/Resolved]
  - Tachycardia [Recovered/Resolved]
  - Dyspnoea [Recovered/Resolved]
  - Rash [Recovered/Resolved]
  - Drug hypersensitivity [Recovered/Resolved]
